FAERS Safety Report 23550111 (Version 1)
Quarter: 2024Q1

REPORT INFORMATION
  Report Type: Spontaneous
  Country: US (occurrence: None)
  Receive Date: 20240221
  Receipt Date: 20240221
  Transmission Date: 20240410
  Serious: Yes (Other)
  Sender: FDA-Public Use
  Company Number: None

PATIENT
  Sex: Male

DRUGS (1)
  1. GENGRAF [Suspect]
     Active Substance: CYCLOSPORINE
     Dosage: FREQUENCY : BEFORE MEALS;?
     Route: 048
     Dates: start: 20220823

REACTIONS (1)
  - Chronic kidney disease [None]
